FAERS Safety Report 6715059-6 (Version None)
Quarter: 2010Q2

REPORT INFORMATION
  Report Type: 
  Country: None (occurrence: None)
  Receive Date: 20100507
  Receipt Date: 20100430
  Transmission Date: 20101027
  Serious: Yes (Life-Threatening, Hospitalization)
  Sender: FDA-Public Use
  Company Number: AT-BAYER-201023946GPV

PATIENT
  Age: 56 Year
  Sex: Male

DRUGS (4)
  1. FLUDARABINE PHOSPHATE [Suspect]
     Indication: T-CELL PROLYMPHOCYTIC LEUKAEMIA
     Dosage: 4 CYCLES EVERY 4 WEEKS  FOR 3 DAYS
     Route: 042
     Dates: start: 20091015, end: 20100110
  2. ALEMTUZUMAB [Suspect]
     Indication: T-CELL PROLYMPHOCYTIC LEUKAEMIA
     Dosage: 4 CYCLES EVERY 4 WEEKS FOR 1 DAY
     Route: 058
     Dates: start: 20091015, end: 20100110
  3. CYCLOPHOSPHAMIDE [Suspect]
     Indication: T-CELL PROLYMPHOCYTIC LEUKAEMIA
     Dosage: 4 CYCLES EVERY 4 WEEKS FOR 3 DAYS
     Route: 042
     Dates: start: 20091015, end: 20100110
  4. MITOXANTRONE [Suspect]
     Indication: T-CELL PROLYMPHOCYTIC LEUKAEMIA
     Dosage: 4 CYCLES EVERY 4 WEEKS
     Route: 042
     Dates: start: 20091015, end: 20100110

REACTIONS (3)
  - GUILLAIN-BARRE SYNDROME [None]
  - PAIN [None]
  - PARESIS [None]
